FAERS Safety Report 5497109-0 (Version None)
Quarter: 2007Q4

REPORT INFORMATION
  Report Type: 
  Country: None (occurrence: None)
  Receive Date: 20071023
  Receipt Date: 20071008
  Transmission Date: 20080405
  Serious: Yes (Life-Threatening, Hospitalization)
  Sender: FDA-Public Use
  Company Number: 2007S1009957

PATIENT
  Age: 49 Year
  Sex: Male

DRUGS (5)
  1. CITALOPRAM  (CITALOPRAM) [Suspect]
     Indication: DEPRESSION
     Dosage: 2 DF; DAILY
     Dates: start: 20041206, end: 20070926
  2. ALENDRONIC ACID [Concomitant]
  3. MIRTAZAPINE [Concomitant]
  4. PROCHLORPERAZINE [Concomitant]
  5. MALEATE [Concomitant]

REACTIONS (2)
  - INFERIOR VENA CAVAL OCCLUSION [None]
  - RETROPERITONEAL FIBROSIS [None]
